FAERS Safety Report 7202558-6 (Version None)
Quarter: 2010Q4

REPORT INFORMATION
  Report Type: 
  Country: None (occurrence: None)
  Receive Date: 20101126
  Receipt Date: 20101011
  Transmission Date: 20110411
  Serious: Yes (Hospitalization)
  Sender: FDA-Public Use
  Company Number: 315119

PATIENT
  Age: 78 Year
  Sex: Male

DRUGS (7)
  1. VICTOZA [Suspect]
     Indication: TYPE 2 DIABETES MELLITUS
     Dosage: SUBCUTANEOUS ; 1.2 MG, QD, SUBCUTANEOUS
     Route: 058
     Dates: start: 20100701, end: 20100801
  2. VICTOZA [Suspect]
     Dosage: SUBCUTANEOUS
     Route: 058
  3. IPRATROPIUM BROMIDE [Concomitant]
  4. SYMBICORT [Concomitant]
  5. QVAR (BECLOMETASONE DIPORPIONATE) [Concomitant]
  6. PROVENTIL /00139501/ (SALBUTAMOL) [Concomitant]
  7. NPH INSULIN [Concomitant]

REACTIONS (1)
  - PANCREATITIS [None]
